FAERS Safety Report 18190119 (Version 1)
Quarter: 2020Q3

REPORT INFORMATION
  Report Type: Report from Study
  Country: US (occurrence: US)
  Receive Date: 20200824
  Receipt Date: 20200824
  Transmission Date: 20201103
  Serious: Yes (Hospitalization)
  Sender: FDA-Public Use
  Company Number: US-ACTELION-A-NJ2020-207437

PATIENT
  Sex: Female
  Weight: 78.01 kg

DRUGS (3)
  1. UPTRAVI [Suspect]
     Active Substance: SELEXIPAG
     Indication: PULMONARY ARTERIAL HYPERTENSION
     Route: 048
  2. OPSUMIT [Suspect]
     Active Substance: MACITENTAN
     Indication: PULMONARY ARTERIAL HYPERTENSION
     Dosage: 10 MG, QD
     Route: 048
  3. TADALAFIL. [Concomitant]
     Active Substance: TADALAFIL

REACTIONS (14)
  - Arthralgia [Unknown]
  - Chest pain [Unknown]
  - Pericardial effusion [Unknown]
  - Renal disorder [Unknown]
  - Pleural effusion [Unknown]
  - Fatigue [Unknown]
  - Pain [Unknown]
  - Pain in jaw [Unknown]
  - Dyspepsia [Unknown]
  - Asthma [Unknown]
  - Diarrhoea [Unknown]
  - Hiccups [Unknown]
  - Pain in extremity [Unknown]
  - Bone pain [Unknown]
